FAERS Safety Report 24043256 (Version 1)
Quarter: 2024Q3

REPORT INFORMATION
  Report Type: Spontaneous
  Country: CN (occurrence: CN)
  Receive Date: 20240702
  Receipt Date: 20240702
  Transmission Date: 20241017
  Serious: Yes (Hospitalization, Other)
  Sender: PFIZER
  Company Number: CN-PFIZER INC-PV202400085694

PATIENT
  Age: 5 Year
  Sex: Male
  Weight: 16 kg

DRUGS (4)
  1. METHOTREXATE SODIUM [Suspect]
     Active Substance: METHOTREXATE SODIUM
     Indication: Acute lymphocytic leukaemia
     Dosage: 0.2 G, 1X/DAY
     Route: 041
     Dates: start: 20240605, end: 20240605
  2. METHOTREXATE SODIUM [Suspect]
     Active Substance: METHOTREXATE SODIUM
     Dosage: 1.84 G, 1X/DAY
     Route: 041
     Dates: start: 20240605, end: 20240605
  3. SODIUM CHLORIDE [Concomitant]
     Active Substance: SODIUM CHLORIDE
     Indication: Vehicle solution use
     Dosage: 50 ML, 1X/DAY
     Dates: start: 20240605, end: 20240605
  4. DEXTROSE [Concomitant]
     Active Substance: DEXTROSE\DEXTROSE MONOHYDRATE
     Indication: Vehicle solution use
     Dosage: 500 ML, 1X/DAY
     Dates: start: 20240605, end: 20240605

REACTIONS (3)
  - Drug level increased [Recovering/Resolving]
  - Pyrexia [Recovering/Resolving]
  - Abdominal pain [Recovering/Resolving]

NARRATIVE: CASE EVENT DATE: 20240607
